FAERS Safety Report 15614120 (Version 1)
Quarter: 2018Q4

REPORT INFORMATION
  Report Type: Spontaneous
  Country: CA (occurrence: CA)
  Receive Date: 20181113
  Receipt Date: 20181113
  Transmission Date: 20190205
  Serious: Yes (Hospitalization, Other)
  Sender: FDA-Public Use
  Company Number: CA-SHIRE-CA201843262

PATIENT

DRUGS (3)
  1. ASPIRIN. [Concomitant]
     Active Substance: ASPIRIN
     Indication: PRODUCT USED FOR UNKNOWN INDICATION
  2. METHYLPREDNISOLONE. [Concomitant]
     Active Substance: METHYLPREDNISOLONE
     Indication: PRODUCT USED FOR UNKNOWN INDICATION
  3. GAMMAGARD LIQUID [Suspect]
     Active Substance: HUMAN IMMUNOGLOBULIN G
     Indication: KAWASAKI^S DISEASE
     Dosage: 2000 MG/KG, UNK
     Route: 042

REACTIONS (9)
  - Blood lactate dehydrogenase increased [Unknown]
  - Pyrexia [Unknown]
  - Reticulocyte count increased [Unknown]
  - Transfusion [Unknown]
  - Chills [Unknown]
  - Hypotension [Unknown]
  - Haemoglobin decreased [Unknown]
  - Chromaturia [Unknown]
  - Coombs direct test positive [Unknown]
